FAERS Safety Report 13794573 (Version 2)
Quarter: 2017Q3

REPORT INFORMATION
  Report Type: Spontaneous
  Country: US (occurrence: US)
  Receive Date: 20170726
  Receipt Date: 20170801
  Transmission Date: 20171127
  Serious: No
  Sender: FDA-Public Use
  Company Number: US-PFIZER INC-2017321966

PATIENT
  Sex: Male

DRUGS (1)
  1. NEURONTIN [Suspect]
     Active Substance: GABAPENTIN
     Indication: DIABETIC NEUROPATHY
     Dosage: 1200 MG, DAILY (TAKES 900MG IN THE MORNING AND 300MG AT LUNCHTIME)

REACTIONS (3)
  - Pain [Unknown]
  - Drug dose omission [Unknown]
  - Product use in unapproved indication [Unknown]
